FAERS Safety Report 6891528-3 (Version None)
Quarter: 2010Q3

REPORT INFORMATION
  Report Type: 
  Country: None (occurrence: None)
  Receive Date: 20100731
  Receipt Date: 20071213
  Transmission Date: 20110219
  Serious: Yes (Other)
  Sender: FDA-Public Use
  Company Number: US-PFIZER INC-2005156051

PATIENT
  Age: 48 Year
  Sex: Female
  Weight: 68 kg

DRUGS (2)
  1. DEPO-MEDROL [Suspect]
     Indication: SCIATICA
     Route: 008
     Dates: start: 20031205
  2. DEPO-MEDROL [Suspect]
     Indication: BACK PAIN

REACTIONS (5)
  - ARTHRALGIA [None]
  - BACK PAIN [None]
  - CARTILAGE INJURY [None]
  - GAIT DISTURBANCE [None]
  - OSTEONECROSIS [None]
